FAERS Safety Report 6990000-X (Version None)
Quarter: 2010Q3

REPORT INFORMATION
  Report Type: 
  Country: None (occurrence: None)
  Receive Date: 20100916
  Receipt Date: 20100409
  Transmission Date: 20110219
  Serious: Yes (Disabling, Other)
  Sender: FDA-Public Use
  Company Number: GB-PFIZER INC-2010034711

PATIENT
  Sex: Female

DRUGS (12)
  1. LYRICA [Suspect]
     Dosage: 50 MG, 3X/DAY
     Route: 048
     Dates: start: 20100209, end: 20100325
  2. VENLAFAXINE [Concomitant]
     Indication: DEPRESSION
     Dosage: 37.5 MG, 2X/DAY
     Route: 048
  3. VENLAFAXINE [Concomitant]
     Indication: POST-TRAUMATIC STRESS DISORDER
  4. LITHIUM CARBONATE [Concomitant]
     Indication: DEPRESSION
     Dosage: 1000 MG, 1X/DAY
     Route: 048
  5. LITHIUM CARBONATE [Concomitant]
     Indication: POST-TRAUMATIC STRESS DISORDER
  6. AMLODIPINE [Concomitant]
     Dosage: 5 MG, 1X/DAY
     Route: 048
  7. TRANEXAMIC ACID [Concomitant]
     Dosage: 500 MG, 3X/DAY
     Route: 048
  8. ZOPICLONE [Concomitant]
     Indication: SLEEP DISORDER
     Dosage: 7.5MG TO 15MG ONCE DAILY
  9. DIAZEPAM [Concomitant]
     Dosage: 2 MG, 1X/DAY
  10. AMISULPRIDE [Concomitant]
     Dosage: UNK
  11. ORPHENADRINE [Concomitant]
     Dosage: UNK
     Dates: end: 20100223
  12. LEVOTHYROXINE SODIUM [Concomitant]
     Dosage: 150 UG, 1X/DAY

REACTIONS (8)
  - BRUXISM [None]
  - DYSKINESIA [None]
  - DYSPHAGIA [None]
  - DYSTONIA [None]
  - JOINT STIFFNESS [None]
  - PAIN IN JAW [None]
  - SPEECH DISORDER [None]
  - TONGUE BITING [None]
